FAERS Safety Report 13587421 (Version 7)
Quarter: 2018Q2

REPORT INFORMATION
  Report Type: Report from Study
  Country: US (occurrence: US)
  Receive Date: 20170526
  Receipt Date: 20180418
  Transmission Date: 20180711
  Serious: Yes (Hospitalization, Other)
  Sender: FDA-Public Use
  Company Number: US-ACTELION-A-NJ2017-151526

PATIENT
  Age: 57 Year
  Sex: Female

DRUGS (4)
  1. UPTRAVI [Suspect]
     Active Substance: SELEXIPAG
     Indication: PULMONARY ARTERIAL HYPERTENSION
     Dosage: 1200 MCG, BID
     Route: 048
     Dates: start: 20170810
  2. LETAIRIS [Concomitant]
     Active Substance: AMBRISENTAN
  3. UPTRAVI [Suspect]
     Active Substance: SELEXIPAG
     Dosage: 1200 MCG, QAM, 1400 MCG, QPM
     Route: 048
  4. UPTRAVI [Suspect]
     Active Substance: SELEXIPAG
     Dosage: 400 MCG, BID
     Route: 048
     Dates: start: 20170220

REACTIONS (21)
  - Drug dose omission [Recovering/Resolving]
  - Motion sickness [Unknown]
  - Multiple sclerosis [Unknown]
  - Arthralgia [Unknown]
  - Eye disorder [Unknown]
  - Nasal congestion [Unknown]
  - Multiple allergies [Unknown]
  - Headache [Unknown]
  - Gastroenteritis viral [Unknown]
  - Malaise [Unknown]
  - Fatigue [Unknown]
  - Abdominal pain upper [Recovering/Resolving]
  - Nausea [Unknown]
  - Dizziness [Unknown]
  - Rhinorrhoea [Unknown]
  - Gastrointestinal motility disorder [Unknown]
  - Neoplasm malignant [Unknown]
  - Ear disorder [Unknown]
  - Diarrhoea [Unknown]
  - Chest pain [Unknown]
  - Peripheral swelling [Unknown]

NARRATIVE: CASE EVENT DATE: 20170314
